FAERS Safety Report 18253626 (Version 1)
Quarter: 2020Q3

REPORT INFORMATION
  Report Type: Spontaneous
  Country: US (occurrence: US)
  Receive Date: 20200910
  Receipt Date: 20200910
  Transmission Date: 20201103
  Serious: Yes (Other)
  Sender: FDA-Public Use
  Company Number: US-PFIZER INC-2020347997

PATIENT
  Age: 75 Year
  Sex: Male

DRUGS (7)
  1. OFEV [Suspect]
     Active Substance: NINTEDANIB
     Dosage: UNK
  2. ERLEADA [Suspect]
     Active Substance: APALUTAMIDE
     Indication: NEOPLASM MALIGNANT
     Dosage: UNK
  3. OFEV [Suspect]
     Active Substance: NINTEDANIB
     Indication: IDIOPATHIC PULMONARY FIBROSIS
     Dosage: 300 MG, 1X/DAY
     Route: 048
     Dates: start: 20180109, end: 2018
  4. TIKOSYN [Suspect]
     Active Substance: DOFETILIDE
     Dosage: 500 UG, 1X/DAY (500 MCG (500 MCG, 1 IN 1 D))
  5. TIKOSYN [Suspect]
     Active Substance: DOFETILIDE
     Dosage: 250 UG, 1X/DAY (250 MCG (250 MCG, 1 IN 1 D))
  6. OFEV [Suspect]
     Active Substance: NINTEDANIB
     Dosage: 200 MG, DAILY (100 MILLIGRARMS, 2 EVERY DAY)
     Route: 048
     Dates: start: 20190410
  7. ELIQUIS [Concomitant]
     Active Substance: APIXABAN
     Dosage: UNK

REACTIONS (18)
  - Bronchitis [Unknown]
  - Cough [Unknown]
  - Feeling abnormal [Unknown]
  - Dyspnoea exertional [Unknown]
  - Illness [Unknown]
  - Decreased appetite [Unknown]
  - Diabetes mellitus [Unknown]
  - Abdominal discomfort [Unknown]
  - Abdominal pain upper [Recovered/Resolved]
  - Gastrointestinal disorder [Unknown]
  - Tachycardia [Unknown]
  - Lip and/or oral cavity cancer [Unknown]
  - Infection [Unknown]
  - Lethargy [Unknown]
  - Pruritus [Unknown]
  - Nausea [Recovered/Resolved]
  - Fatigue [Unknown]
  - Rash [Unknown]

NARRATIVE: CASE EVENT DATE: 201801
